FAERS Safety Report 17636410 (Version 1)
Quarter: 2020Q2

REPORT INFORMATION
  Report Type: Spontaneous
  Country: KR (occurrence: KR)
  Receive Date: 20200407
  Receipt Date: 20200407
  Transmission Date: 20200713
  Serious: Yes (Death, Other)
  Sender: FDA-Public Use
  Company Number: KR-UNITED THERAPEUTICS-UNT-2020-001766

PATIENT
  Age: 4 Year
  Sex: Female
  Weight: 13.7 kg

DRUGS (19)
  1. BUSULFAN. [Suspect]
     Active Substance: BUSULFAN
     Indication: NEUROBLASTOMA
     Dosage: UNK
     Route: 065
  2. ETOPOSIDE. [Concomitant]
     Active Substance: ETOPOSIDE
     Indication: NEUROBLASTOMA
     Dosage: 200 MG/M2 ON DAYS 2-4
     Route: 065
  3. DOXORUBICIN [Concomitant]
     Active Substance: DOXORUBICIN
     Indication: NEUROBLASTOMA
     Dosage: 60 MG/M2 ON DAYS 1
     Route: 065
  4. MELPHALAN. [Concomitant]
     Active Substance: MELPHALAN
     Dosage: 70 MG/M2/DAY FOR 2 DAYS
     Route: 065
  5. MELPHALAN. [Concomitant]
     Active Substance: MELPHALAN
     Indication: NEUROBLASTOMA
     Dosage: 60 MG/M2/DAY FOR 3 DAYS
     Route: 065
  6. 13-CIS-RETINOIC ACID [Suspect]
     Active Substance: ISOTRETINOIN
     Indication: NEUROBLASTOMA
     Dosage: UNK
     Route: 065
  7. INTERLEUKIN-2 [Suspect]
     Active Substance: ALDESLEUKIN
     Indication: NEUROBLASTOMA
     Dosage: UNK
     Route: 065
  8. IFOSFAMIDE. [Concomitant]
     Active Substance: IFOSFAMIDE
     Indication: NEUROBLASTOMA
     Dosage: 1500 MG/M2 ON DAYS 1-5
     Route: 065
  9. ETOPOSIDE. [Concomitant]
     Active Substance: ETOPOSIDE
     Dosage: 100 MG/M2 ON DAYS 1-5
     Route: 065
  10. ETOPOSIDE. [Concomitant]
     Active Substance: ETOPOSIDE
     Dosage: 300 MG/M2/DAY FOR 4 DAYS
     Route: 065
  11. CYCLOPHOSPHAMIDE. [Concomitant]
     Active Substance: CYCLOPHOSPHAMIDE
     Dosage: 1500 MG/M2/ DAY FOR 4 DAYS
     Route: 065
  12. THIOTEPA. [Concomitant]
     Active Substance: THIOTEPA
     Indication: NEUROBLASTOMA
     Dosage: 300 MG/M2/DAY FOR 3 DAYS
     Route: 065
  13. UNITUXIN [Suspect]
     Active Substance: DINUTUXIMAB
     Dosage: 17.5 MG/M2
     Route: 041
     Dates: start: 20160711, end: 20160915
  14. VINCRISTINE [Concomitant]
     Active Substance: VINCRISTINE
     Indication: NEUROBLASTOMA
     Dosage: 1.5 MG/M2 ON DAY 1
     Route: 065
  15. CYCLOPHOSPHAMIDE. [Concomitant]
     Active Substance: CYCLOPHOSPHAMIDE
     Indication: NEUROBLASTOMA
     Dosage: 2000 MG/M2 ON DAYS 1-2
     Route: 065
  16. CARBOPLATIN. [Concomitant]
     Active Substance: CARBOPLATIN
     Indication: NEUROBLASTOMA
     Dosage: 350 MG/M2 ON DAYS 1-2
     Route: 065
  17. CARBOPLATIN. [Concomitant]
     Active Substance: CARBOPLATIN
     Dosage: UNK
     Route: 065
  18. CISPLATIN. [Concomitant]
     Active Substance: CISPLATIN
     Indication: NEUROBLASTOMA
     Dosage: 40 MG/M2 ON DAYS 1-5
     Route: 065
  19. G-CSF [Concomitant]
     Active Substance: GRANULOCYTE COLONY-STIMULATING FACTOR NOS
     Indication: PRODUCT USED FOR UNKNOWN INDICATION
     Dosage: 10 ?G/KG, UNK
     Route: 058

REACTIONS (3)
  - Interstitial lung disease [Fatal]
  - Respiratory failure [Unknown]
  - Sepsis [Fatal]

NARRATIVE: CASE EVENT DATE: 20170711
